FAERS Safety Report 9470562 (Version 1)
Quarter: 2013Q3

REPORT INFORMATION
  Report Type: Spontaneous
  Country: US (occurrence: None)
  Receive Date: 20130820
  Receipt Date: 20130820
  Transmission Date: 20140515
  Serious: No
  Sender: FDA-Public Use
  Company Number: None

PATIENT
  Age: 2 Year
  Sex: Male

DRUGS (2)
  1. UP AND UP DIAPER RASH [Suspect]
     Indication: DERMATITIS DIAPER
     Route: 061
     Dates: start: 20130807, end: 20130807
  2. UP AND UP DIAPER RASH [Suspect]
     Indication: PROPHYLAXIS
     Route: 061
     Dates: start: 20130807, end: 20130807

REACTIONS (3)
  - Screaming [None]
  - Pain [None]
  - Erythema [None]
